FAERS Safety Report 24105971 (Version 1)
Quarter: 2024Q3

REPORT INFORMATION
  Report Type: Spontaneous
  Country: CN (occurrence: CN)
  Receive Date: 20240717
  Receipt Date: 20240717
  Transmission Date: 20241016
  Serious: Yes (Other)
  Sender: EISAI
  Company Number: CN-Eisai-EC-2024-169877

PATIENT
  Age: 52 Year
  Sex: Male

DRUGS (4)
  1. RABEPRAZOLE [Suspect]
     Active Substance: RABEPRAZOLE
     Indication: Gastrointestinal disorder prophylaxis
     Route: 048
     Dates: start: 20240615, end: 20240621
  2. TEPRENONE [Suspect]
     Active Substance: TEPRENONE
     Indication: Gastrointestinal disorder prophylaxis
     Route: 048
     Dates: start: 20240615, end: 20240628
  3. PAROXETINE HYDROCHLORIDE [Concomitant]
     Active Substance: PAROXETINE HYDROCHLORIDE\PAROXETINE HYDROCHLORIDE ANHYDROUS
     Indication: Neuropathy peripheral
     Route: 048
     Dates: start: 20240615, end: 20240621
  4. METHYLCOBALAMIN [Concomitant]
     Active Substance: METHYLCOBALAMIN
     Indication: Neuropathy peripheral
     Route: 048
     Dates: start: 20240615, end: 20240621

REACTIONS (1)
  - Urticaria papular [Recovering/Resolving]

NARRATIVE: CASE EVENT DATE: 20240624
